FAERS Safety Report 23070078 (Version 3)
Quarter: 2024Q2

REPORT INFORMATION
  Report Type: Spontaneous
  Country: US (occurrence: US)
  Receive Date: 20231016
  Receipt Date: 20240524
  Transmission Date: 20240716
  Serious: Yes (Hospitalization, Other)
  Sender: FDA-Public Use
  Company Number: US-PFIZER INC-PV202300168055

PATIENT
  Age: 63 Year
  Sex: Male

DRUGS (1)
  1. XELJANZ XR [Suspect]
     Active Substance: TOFACITINIB CITRATE
     Dosage: 11 MG

REACTIONS (8)
  - Epistaxis [Unknown]
  - Pain [Unknown]
  - Full blood count abnormal [Unknown]
  - Transfusion [Unknown]
  - Musculoskeletal stiffness [Unknown]
  - Iron overload [Unknown]
  - Platelet count increased [Unknown]
  - Haemoglobin decreased [Unknown]
